FAERS Safety Report 19738796 (Version 1)
Quarter: 2021Q3

REPORT INFORMATION
  Report Type: Spontaneous
  Country: US (occurrence: US)
  Receive Date: 20210823
  Receipt Date: 20210823
  Transmission Date: 20211014
  Serious: Yes (Other)
  Sender: FDA-Public Use
  Company Number: US-ELI_LILLY_AND_COMPANY-US202108005684

PATIENT
  Sex: Female
  Weight: 55.78 kg

DRUGS (5)
  1. CALCIUM CITRATE [Concomitant]
     Active Substance: CALCIUM CITRATE
     Indication: MENOPAUSE
     Dosage: UNK, UNKNOWN
  2. MAGNESIUM [Concomitant]
     Active Substance: MAGNESIUM
     Dosage: UNK, UNKNOWN
  3. EVISTA [Suspect]
     Active Substance: RALOXIFENE HYDROCHLORIDE
     Indication: OSTEOPOROSIS
     Dosage: UNK, UNKNOWN
     Route: 065
  4. OSTEO BI?FLEX [CHONDROITIN SULFATE;GLUCOSAMIN [Concomitant]
     Dosage: UNK, UNKNOWN
  5. TURMERIC [CURCUMA LONGA] [Concomitant]
     Active Substance: HERBALS\TURMERIC
     Dosage: UNK, UNKNOWN

REACTIONS (1)
  - Breast cancer [Unknown]
